FAERS Safety Report 19321603 (Version 2)
Quarter: 2022Q4

REPORT INFORMATION
  Report Type: Spontaneous
  Country: US (occurrence: None)
  Receive Date: 20210528
  Receipt Date: 20221115
  Transmission Date: 20230112
  Serious: Yes (Other)
  Sender: FDA-Public Use
  Company Number: 2021A425325

PATIENT
  Age: 13150 Day
  Sex: Male
  Weight: 113.4 kg

DRUGS (42)
  1. PRILOSEC [Suspect]
     Active Substance: OMEPRAZOLE MAGNESIUM
     Indication: Gastrooesophageal reflux disease
     Route: 048
     Dates: start: 2006, end: 2020
  2. PRILOSEC [Suspect]
     Active Substance: OMEPRAZOLE MAGNESIUM
     Indication: Peptic ulcer
     Route: 048
     Dates: start: 2006, end: 2020
  3. PRILOSEC [Suspect]
     Active Substance: OMEPRAZOLE MAGNESIUM
     Indication: Gastric disorder
     Route: 048
     Dates: start: 2006, end: 2020
  4. PRILOSEC [Suspect]
     Active Substance: OMEPRAZOLE MAGNESIUM
     Indication: Gastrectomy
     Route: 048
     Dates: start: 2006, end: 2020
  5. PRILOSEC [Suspect]
     Active Substance: OMEPRAZOLE MAGNESIUM
     Indication: Gastrooesophageal reflux disease
     Route: 048
     Dates: start: 200610
  6. PRILOSEC [Suspect]
     Active Substance: OMEPRAZOLE MAGNESIUM
     Indication: Peptic ulcer
     Route: 048
     Dates: start: 200610
  7. PRILOSEC [Suspect]
     Active Substance: OMEPRAZOLE MAGNESIUM
     Indication: Gastric disorder
     Route: 048
     Dates: start: 200610
  8. PRILOSEC [Suspect]
     Active Substance: OMEPRAZOLE MAGNESIUM
     Indication: Gastrectomy
     Route: 048
     Dates: start: 200610
  9. PRILOSEC OTC [Suspect]
     Active Substance: OMEPRAZOLE MAGNESIUM
     Route: 048
  10. NEXIUM [Suspect]
     Active Substance: ESOMEPRAZOLE MAGNESIUM
     Indication: Gastrectomy
     Route: 048
     Dates: start: 200610
  11. NEXIUM [Suspect]
     Active Substance: ESOMEPRAZOLE MAGNESIUM
     Indication: Gastrectomy
     Dosage: GENERIC
     Route: 065
     Dates: start: 200610
  12. NEXIUM 24HR [Suspect]
     Active Substance: ESOMEPRAZOLE MAGNESIUM
     Route: 048
  13. PREVACID [Suspect]
     Active Substance: LANSOPRAZOLE
     Indication: Gastrectomy
     Route: 065
     Dates: start: 200610
  14. PREVACID 24 HR [Suspect]
     Active Substance: LANSOPRAZOLE
     Route: 065
  15. ZANTAC [Suspect]
     Active Substance: RANITIDINE HYDROCHLORIDE
     Indication: Gastrectomy
     Route: 065
     Dates: start: 200610
  16. ZANTAC [Suspect]
     Active Substance: RANITIDINE HYDROCHLORIDE
     Route: 065
  17. MAGNESIUM [Suspect]
     Active Substance: MAGNESIUM
     Dosage: 20.0MG UNKNOWN
     Route: 065
  18. ESOMEPRAZOLE [Suspect]
     Active Substance: ESOMEPRAZOLE
     Dosage: KIRKLAND- GENERIC
     Route: 065
  19. FAMOTIDINE [Concomitant]
     Active Substance: FAMOTIDINE
  20. TUMS [Concomitant]
     Active Substance: CALCIUM CARBONATE
  21. BUPROPION HYDROCHLORIDE [Concomitant]
     Active Substance: BUPROPION HYDROCHLORIDE
  22. AMOXICILLIN [Concomitant]
     Active Substance: AMOXICILLIN
  23. MUPIROCIN [Concomitant]
     Active Substance: MUPIROCIN
  24. LIDOCAINE [Concomitant]
     Active Substance: LIDOCAINE
  25. GABAPENTIN [Concomitant]
     Active Substance: GABAPENTIN
  26. PANTOPRAZOLE [Concomitant]
     Active Substance: PANTOPRAZOLE
  27. IOHEXOL [Concomitant]
     Active Substance: IOHEXOL
  28. CONCERTA [Concomitant]
     Active Substance: METHYLPHENIDATE HYDROCHLORIDE
  29. BACLOFEN [Concomitant]
     Active Substance: BACLOFEN
  30. VIIBRYD [Concomitant]
     Active Substance: VILAZODONE HYDROCHLORIDE
  31. DOCUSATE SODIUM [Concomitant]
     Active Substance: DOCUSATE SODIUM
  32. GABAPENTIN [Concomitant]
     Active Substance: GABAPENTIN
  33. OXYCODONE [Concomitant]
     Active Substance: OXYCODONE
  34. ACETAMINOPHEN [Concomitant]
     Active Substance: ACETAMINOPHEN
  35. KETOROLAC [Concomitant]
     Active Substance: KETOROLAC TROMETHAMINE
  36. POLYETHYLENE GLYCOL [Concomitant]
     Active Substance: POLYETHYLENE GLYCOL
  37. MAGNESIUM OXIDE [Concomitant]
     Active Substance: MAGNESIUM OXIDE
  38. DIPHENHYDRAMINE [Concomitant]
     Active Substance: DIPHENHYDRAMINE
  39. ONDANSETRON [Concomitant]
     Active Substance: ONDANSETRON
  40. HYDROMORPHONE [Concomitant]
     Active Substance: HYDROMORPHONE
  41. METOCLOPRAMIDE [Concomitant]
     Active Substance: METOCLOPRAMIDE
  42. HEPARIN [Concomitant]
     Active Substance: HEPARIN SODIUM

REACTIONS (4)
  - Chronic kidney disease [Unknown]
  - Renal cell carcinoma [Not Recovered/Not Resolved]
  - Anxiety [Unknown]
  - Depression [Unknown]

NARRATIVE: CASE EVENT DATE: 20191228
